FAERS Safety Report 13061459 (Version 1)
Quarter: 2016Q4

REPORT INFORMATION
  Report Type: Spontaneous
  Country: US (occurrence: US)
  Receive Date: 20161226
  Receipt Date: 20161226
  Transmission Date: 20170207
  Serious: No
  Sender: FDA-Public Use
  Company Number: US-NOVEN PHARMACEUTICALS, INC.-US2015001131

PATIENT
  Age: 25 Year
  Sex: Female

DRUGS (1)
  1. MINIVELLE [Suspect]
     Active Substance: ESTRADIOL
     Indication: MIGRAINE
     Dosage: UNK, UNKNOWN
     Route: 062
     Dates: start: 201507, end: 2015

REACTIONS (5)
  - Application site scar [Unknown]
  - Application site discharge [Unknown]
  - Off label use [Recovered/Resolved]
  - Application site burn [Unknown]
  - Application site vesicles [Unknown]

NARRATIVE: CASE EVENT DATE: 2015
